FAERS Safety Report 16773033 (Version 2)
Quarter: 2019Q3

REPORT INFORMATION
  Report Type: Spontaneous
  Country: US (occurrence: US)
  Receive Date: 20190904
  Receipt Date: 20190930
  Transmission Date: 20191005
  Serious: Yes (Death, Hospitalization, Disabling, Other)
  Sender: FDA-Public Use
  Company Number: US-GILEAD-2019-0426068

PATIENT
  Age: 52 Year
  Sex: Female
  Weight: 112 kg

DRUGS (20)
  1. ONDANSETRON [Concomitant]
     Active Substance: ONDANSETRON
  2. LEVETIRACETAM. [Concomitant]
     Active Substance: LEVETIRACETAM
  3. FLUDARABINE [Concomitant]
     Active Substance: FLUDARABINE PHOSPHATE
  4. ALLOPURINOL. [Concomitant]
     Active Substance: ALLOPURINOL
  5. GABAPENTIN. [Concomitant]
     Active Substance: GABAPENTIN
  6. LIDOCAINE. [Concomitant]
     Active Substance: LIDOCAINE
  7. INSULIN ASPART [Concomitant]
     Active Substance: INSULIN ASPART
  8. PANTOPRAZOLE [Concomitant]
     Active Substance: PANTOPRAZOLE
  9. YESCARTA [Suspect]
     Active Substance: AXICABTAGENE CILOLEUCEL
     Indication: DIFFUSE LARGE B-CELL LYMPHOMA REFRACTORY
     Dosage: 68 ML
     Route: 042
     Dates: start: 20190628, end: 20190628
  10. INSULIN GLARGINE [Concomitant]
     Active Substance: INSULIN GLARGINE
  11. FLUCONAZOLE. [Concomitant]
     Active Substance: FLUCONAZOLE
  12. MELATONIN [Concomitant]
     Active Substance: MELATONIN
  13. CYCLOPHOSPHAMIDE. [Concomitant]
     Active Substance: CYCLOPHOSPHAMIDE
  14. ACETAMINOPHEN. [Concomitant]
     Active Substance: ACETAMINOPHEN
  15. DIPHENHYDRAMINE. [Concomitant]
     Active Substance: DIPHENHYDRAMINE
  16. LOTRIMIN [Concomitant]
     Active Substance: CLOTRIMAZOLE
  17. CALCIUM GLUCONATE. [Concomitant]
     Active Substance: CALCIUM GLUCONATE
  18. CEFTRIAXONE. [Concomitant]
     Active Substance: CEFTRIAXONE
  19. SPIRONOLACTONE. [Concomitant]
     Active Substance: SPIRONOLACTONE
  20. POTASSIUM PHOSPHATES [Concomitant]
     Active Substance: POTASSIUM PHOSPHATE, DIBASIC\POTASSIUM PHOSPHATE, MONOBASIC

REACTIONS (11)
  - Neurotoxicity [Not Recovered/Not Resolved]
  - Aspergillus infection [Unknown]
  - Infection [Not Recovered/Not Resolved]
  - Cytokine release syndrome [Recovered/Resolved]
  - Hypogammaglobulinaemia [Unknown]
  - Renal failure [Unknown]
  - Encephalopathy [Recovered/Resolved]
  - Aphasia [Unknown]
  - Lip disorder [Unknown]
  - Mycobacterium abscessus infection [Fatal]
  - Acute respiratory failure [Unknown]

NARRATIVE: CASE EVENT DATE: 2019
